FAERS Safety Report 5588081-3 (Version None)
Quarter: 2008Q1

REPORT INFORMATION
  Report Type: 
  Country: None (occurrence: None)
  Receive Date: 20080111
  Receipt Date: 20080103
  Transmission Date: 20080703
  Serious: Yes (Hospitalization, Disabling, Other)
  Sender: FDA-Public Use
  Company Number: GB-NOVOPROD-270710

PATIENT
  Age: 15 Year
  Sex: Female
  Weight: 64 kg

DRUGS (2)
  1. NOVORAPID [Suspect]
     Indication: TYPE 1 DIABETES MELLITUS
     Dosage: 60 IU, QD
  2. NOVORAPID [Suspect]
     Dosage: 250 IU, QD
     Route: 058
     Dates: start: 20071215, end: 20071215

REACTIONS (1)
  - INSULIN RESISTANCE [None]
